FAERS Safety Report 5418586-7 (Version None)
Quarter: 2007Q3

REPORT INFORMATION
  Report Type: 
  Country: None (occurrence: None)
  Receive Date: 20070718
  Receipt Date: 20060727
  Transmission Date: 20080115
  Serious: Yes (Other)
  Sender: FDA-Public Use
  Company Number: 2006094188

PATIENT
  Sex: Female
  Weight: 140.6151 kg

DRUGS (6)
  1. CELEBREX [Suspect]
     Indication: ARTHRITIS
     Dosage: 200 MG (1 IN 1 D)
     Dates: start: 20021230, end: 20040731
  2. VERAPAMIL [Concomitant]
  3. VIOXX [Concomitant]
  4. CUMADIN [Concomitant]
  5. HYDROCHLOROTHIAZIDE [Concomitant]
  6. SYNTHROID [Concomitant]

REACTIONS (5)
  - ANXIETY [None]
  - DEEP VEIN THROMBOSIS [None]
  - DEPRESSION [None]
  - HYPOAESTHESIA [None]
  - MUSCULAR WEAKNESS [None]
